FAERS Safety Report 24140959 (Version 1)
Quarter: 2024Q3

REPORT INFORMATION
  Report Type: Spontaneous
  Country: US (occurrence: None)
  Receive Date: 20240725
  Receipt Date: 20240725
  Transmission Date: 20241016
  Serious: Yes (Disabling, Other)
  Sender: Public
  Company Number: None

PATIENT
  Age: 64 Year
  Sex: Male
  Weight: 135 kg

DRUGS (1)
  1. MOUNJARO [Suspect]
     Active Substance: TIRZEPATIDE
     Indication: Type 2 diabetes mellitus

REACTIONS (5)
  - Cataract [None]
  - Blood glucose fluctuation [None]
  - Product availability issue [None]
  - Therapy interrupted [None]
  - Therapy change [None]

NARRATIVE: CASE EVENT DATE: 20240612
